FAERS Safety Report 13674827 (Version 1)
Quarter: 2017Q2

REPORT INFORMATION
  Report Type: Spontaneous
  Country: US (occurrence: US)
  Receive Date: 20170621
  Receipt Date: 20170621
  Transmission Date: 20170830
  Serious: Yes (Hospitalization, Other)
  Sender: FDA-Public Use
  Company Number: GXBR2017US002020

PATIENT
  Age: 66 Year
  Sex: Male
  Weight: 136.5 kg

DRUGS (4)
  1. LISINOPRIL TABLETS, USP [Suspect]
     Active Substance: LISINOPRIL
     Indication: HYPERTENSION
     Dosage: 20 MG, QD
     Route: 048
     Dates: end: 20160819
  2. REGRANEX [Suspect]
     Active Substance: BECAPLERMIN
     Indication: DIABETIC ULCER
     Dosage: 0.01%, 1 DF, BID
     Route: 061
     Dates: start: 201606
  3. CARVEDILOL. [Suspect]
     Active Substance: CARVEDILOL
     Indication: HYPERTENSION
     Dosage: 12.5 MG, QD
     Route: 048
     Dates: end: 201603
  4. CARVEDILOL. [Suspect]
     Active Substance: CARVEDILOL
     Dosage: 25 MG, QD
     Route: 048
     Dates: start: 201603

REACTIONS (18)
  - Chest pain [Unknown]
  - Blood pressure diastolic decreased [Unknown]
  - Diabetic neuropathy [Unknown]
  - Dehydration [Unknown]
  - Lung disorder [Recovering/Resolving]
  - Renal artery stenosis [Unknown]
  - Thrombosis [Unknown]
  - Diabetic ulcer [Unknown]
  - Pericardial effusion [Recovering/Resolving]
  - Prostatomegaly [Unknown]
  - Pulmonary oedema [Unknown]
  - Cardiac failure congestive [Unknown]
  - Renal failure [Unknown]
  - Suffocation feeling [Unknown]
  - Drug intolerance [Unknown]
  - Monoplegia [Not Recovered/Not Resolved]
  - Pleural effusion [Recovering/Resolving]
  - Staphylococcal infection [Not Recovered/Not Resolved]

NARRATIVE: CASE EVENT DATE: 2013
